FAERS Safety Report 4766372-3 (Version None)
Quarter: 2005Q3

REPORT INFORMATION
  Report Type: 
  Country: None (occurrence: None)
  Receive Date: 20050909
  Receipt Date: 20050808
  Transmission Date: 20060218
  Serious: Yes (Other)
  Sender: FDA-Public Use
  Company Number: MK200509-0080-1

PATIENT

DRUGS (2)
  1. OPTIRAY 300 [Suspect]
     Indication: SCAN BRAIN
     Dosage: ONE TIME, IV
     Route: 042
     Dates: start: 20050711, end: 20050711
  2. OPTIRAY 240 [Suspect]
     Indication: SCAN BRAIN
     Dosage: ONE TIME, IV
     Route: 042
     Dates: start: 20050711, end: 20050711

REACTIONS (6)
  - ANAPHYLACTIC REACTION [None]
  - ANXIETY [None]
  - FACE OEDEMA [None]
  - NAUSEA [None]
  - RASH [None]
  - UNEVALUABLE EVENT [None]
